FAERS Safety Report 9338140 (Version 1)
Quarter: 2013Q2

REPORT INFORMATION
  Report Type: Spontaneous
  Country: US (occurrence: None)
  Receive Date: 20130605
  Receipt Date: 20130605
  Transmission Date: 20140414
  Serious: Yes (Hospitalization)
  Sender: FDA-Public Use
  Company Number: None

PATIENT
  Age: 77 Year
  Sex: Male
  Weight: 95.26 kg

DRUGS (3)
  1. CEFTRIAXONE [Suspect]
     Indication: URINARY TRACT INFECTION
     Dosage: EVERY 24 HR
     Route: 041
     Dates: start: 20130601, end: 20130603
  2. CEFTRIAXONE [Suspect]
     Indication: CARDIAC FAILURE CONGESTIVE
     Dosage: EVERY 24 HR
     Route: 041
     Dates: start: 20130601, end: 20130603
  3. CEFTRIAXONE [Suspect]
     Indication: DYSPNOEA
     Dosage: EVERY 24 HR
     Route: 041
     Dates: start: 20130601, end: 20130603

REACTIONS (2)
  - Liver function test abnormal [None]
  - Hypotension [None]
